FAERS Safety Report 5426106-6 (Version None)
Quarter: 2007Q3

REPORT INFORMATION
  Report Type: 
  Country: None (occurrence: None)
  Receive Date: 20070823
  Receipt Date: 20070814
  Transmission Date: 20080115
  Serious: Yes (Hospitalization, Other)
  Sender: FDA-Public Use
  Company Number: 2007AL003280

PATIENT

DRUGS (1)
  1. RANITIDINE HCL [Suspect]
     Indication: FEEDING TUBE COMPLICATION
     Dosage: GT

REACTIONS (1)
  - SEPSIS NEONATAL [None]
